FAERS Safety Report 5383243-2 (Version None)
Quarter: 2007Q3

REPORT INFORMATION
  Report Type: 
  Country: None (occurrence: None)
  Receive Date: 20070710
  Receipt Date: 20070628
  Transmission Date: 20080115
  Serious: Yes (Death, Hospitalization)
  Sender: FDA-Public Use
  Company Number: AU-PFIZER INC-2006107489

PATIENT
  Sex: Male
  Weight: 80.3 kg

DRUGS (6)
  1. SU-011,248 [Suspect]
     Indication: METASTATIC RENAL CELL CARCINOMA
     Route: 048
     Dates: start: 20060724, end: 20060829
  2. NORVASC [Concomitant]
     Route: 048
  3. LIPITOR [Concomitant]
     Route: 048
     Dates: start: 19970101
  4. AVAPRO [Concomitant]
     Route: 048
     Dates: start: 19970101
  5. NATURES OWN REFLUX FREE OMEGA-3 FISH OIL [Concomitant]
     Route: 048
  6. ENDEP [Concomitant]
     Route: 048
     Dates: start: 20060602

REACTIONS (3)
  - DELIRIUM [None]
  - DISEASE PROGRESSION [None]
  - METASTATIC RENAL CELL CARCINOMA [None]
